FAERS Safety Report 7919625-1 (Version None)
Quarter: 2011Q4

REPORT INFORMATION
  Report Type: 
  Country: None (occurrence: None)
  Receive Date: 20111117
  Receipt Date: 20111104
  Transmission Date: 20120403
  Serious: Yes (Hospitalization, Other)
  Sender: FDA-Public Use
  Company Number: US-BAYER-2011-108950

PATIENT
  Age: 27 Year
  Sex: Female

DRUGS (15)
  1. ZITHROMAX [Concomitant]
     Dosage: UNK
     Dates: start: 20050901
  2. NUVARING [Concomitant]
     Indication: CONTRACEPTION
     Dosage: UNK
     Dates: start: 20091201, end: 20100201
  3. MULTI-VITAMINS [Concomitant]
  4. AVIANE-28 [Concomitant]
     Indication: CONTRACEPTION
     Dosage: UNK
     Dates: start: 20090101, end: 20090501
  5. YASMIN [Suspect]
     Indication: CONTRACEPTION
     Dosage: UNK
     Dates: start: 20030301, end: 20070301
  6. YASMIN [Suspect]
     Indication: DYSMENORRHOEA
  7. PAIN PILLS [Concomitant]
     Indication: PAIN
  8. YASMIN [Suspect]
     Indication: MENORRHAGIA
     Dosage: UNK
     Dates: start: 20070701, end: 20070901
  9. PHENTERMINE [Concomitant]
     Indication: WEIGHT DECREASED
     Dosage: UNK
     Dates: start: 20050901, end: 20060201
  10. PAROXETINE HCL [Concomitant]
     Indication: ANXIETY
     Dosage: UNK UNK, QD DAILY
     Dates: start: 20031001, end: 20050901
  11. ZOMIG [Concomitant]
     Indication: ANXIETY
     Dosage: UNK
     Dates: start: 20021001, end: 20060801
  12. PAXIL [Concomitant]
  13. APPETITE SUPRESSANT [Concomitant]
  14. ANTIBIOTICS [Concomitant]
     Indication: WHITE BLOOD CELL COUNT INCREASED
     Dosage: UNK
     Route: 041
     Dates: start: 20051030
  15. PRESCRIPTION DRUGS [Concomitant]

REACTIONS (23)
  - ABDOMINAL PAIN UPPER [None]
  - BILIARY COLIC [None]
  - EXCESSIVE SKIN [None]
  - SKIN FISSURES [None]
  - FLANK PAIN [None]
  - DIARRHOEA [None]
  - RASH [None]
  - ANAEMIA [None]
  - REFLUX GASTRITIS [None]
  - TEMPERATURE INTOLERANCE [None]
  - ASTHENIA [None]
  - CHOLELITHIASIS [None]
  - HEPATIC FUNCTION ABNORMAL [None]
  - IMPAIRED GASTRIC EMPTYING [None]
  - VOMITING [None]
  - BILE DUCT STONE [None]
  - NAUSEA [None]
  - DIZZINESS [None]
  - FOOD INTOLERANCE [None]
  - CHOLECYSTITIS CHRONIC [None]
  - GASTRITIS [None]
  - WEIGHT INCREASED [None]
  - DYSPNOEA [None]
